FAERS Safety Report 5975423-X (Version None)
Quarter: 2008Q4

REPORT INFORMATION
  Report Type: 
  Country: None (occurrence: None)
  Receive Date: 20081202
  Receipt Date: 20080317
  Transmission Date: 20090506
  Serious: Yes (Other)
  Sender: FDA-Public Use
  Company Number: US-AMGEN-QUU251930

PATIENT
  Sex: Female

DRUGS (4)
  1. ENBREL [Suspect]
     Indication: RHEUMATOID ARTHRITIS
     Route: 058
     Dates: start: 20021201, end: 20071101
  2. METHOTREXATE [Concomitant]
     Route: 065
  3. HYDROCHLOROTHIAZIDE [Concomitant]
     Route: 065
  4. PREDNISONE TAB [Concomitant]
     Route: 065

REACTIONS (4)
  - BREAST CANCER [None]
  - INFECTION [None]
  - NEUTROPENIA [None]
  - SEPSIS [None]
